FAERS Safety Report 8738256 (Version 2)
Quarter: 2013Q4

REPORT INFORMATION
  Report Type: Spontaneous
  Country: US (occurrence: US)
  Receive Date: 20120823
  Receipt Date: 20131101
  Transmission Date: 20140711
  Serious: No
  Sender: FDA-Public Use
  Company Number: US-009507513-1208USA003986

PATIENT
  Sex: Female

DRUGS (2)
  1. MIRALAX [Suspect]
     Indication: BOWEL PREPARATION
     Dosage: 255 G, ONCE
     Route: 048
     Dates: start: 20120725
  2. MIRALAX [Suspect]
     Indication: COLONOSCOPY

REACTIONS (3)
  - Vomiting [Unknown]
  - Overdose [Unknown]
  - Off label use [Unknown]
